FAERS Safety Report 5851955-X (Version None)
Quarter: 2008Q3

REPORT INFORMATION
  Report Type: 
  Country: None (occurrence: None)
  Receive Date: 20080819
  Receipt Date: 20080805
  Transmission Date: 20090109
  Serious: Yes (Other)
  Sender: FDA-Public Use
  Company Number: 2008AL007986

PATIENT
  Age: 55 Year
  Sex: Female
  Weight: 108.8633 kg

DRUGS (1)
  1. DIGOXIN [Suspect]
     Indication: CARDIAC FAILURE CONGESTIVE
     Dosage: 0.25 MG, DAILY, PO/FROM 8 YEARS
     Route: 048

REACTIONS (5)
  - CARDIOACTIVE DRUG LEVEL INCREASED [None]
  - DIZZINESS [None]
  - DYSGEUSIA [None]
  - MALAISE [None]
  - MUSCULAR WEAKNESS [None]
